FAERS Safety Report 9257229 (Version 2)
Quarter: 2013Q2

REPORT INFORMATION
  Report Type: Report from Study
  Country: JP (occurrence: JP)
  Receive Date: 20130426
  Receipt Date: 20130529
  Transmission Date: 20140414
  Serious: Yes (Death)
  Sender: FDA-Public Use
  Company Number: JP-ROCHE-1217555

PATIENT
  Sex: Male

DRUGS (9)
  1. METHOXY POLYETHYLENE GLYCOL-EPOETIN BETA [Suspect]
     Indication: NEPHROGENIC ANAEMIA
     Route: 042
     Dates: start: 20120806, end: 20121008
  2. BAYASPIRIN [Concomitant]
     Route: 048
     Dates: end: 20121010
  3. TAKEPRON [Concomitant]
     Route: 048
     Dates: end: 20121011
  4. CALFINA [Concomitant]
     Route: 048
     Dates: end: 20121010
  5. CRESTOR [Concomitant]
     Route: 048
     Dates: end: 20121010
  6. SEIBULE [Concomitant]
     Route: 048
     Dates: end: 20121010
  7. ADALAT CR [Concomitant]
     Route: 048
     Dates: end: 20121010
  8. ARGAMATE [Concomitant]
     Route: 048
     Dates: end: 20121010
  9. HUMALOG MIX [Concomitant]
     Route: 058
     Dates: start: 20120905, end: 20121010

REACTIONS (2)
  - Death [Fatal]
  - Hypertension [Unknown]
